FAERS Safety Report 19140807 (Version 2)
Quarter: 2021Q2

REPORT INFORMATION
  Report Type: Report from Study
  Country: IT (occurrence: IT)
  Receive Date: 20210415
  Receipt Date: 20210429
  Transmission Date: 20210717
  Serious: Yes (Death)
  Sender: FDA-Public Use
  Company Number: IT-PFIZER INC-2021394867

PATIENT

DRUGS (4)
  1. VP?16 [Suspect]
     Active Substance: ETOPOSIDE
     Indication: NON-HODGKIN^S LYMPHOMA
     Dosage: 150 MG, CYCLIC 150 MG(I.V. 2?HOUR INFUSION) DAY 1
     Route: 042
  2. PREDNISONE. [Suspect]
     Active Substance: PREDNISONE
     Indication: NON-HODGKIN^S LYMPHOMA
     Dosage: 25 MG, CYCLIC ON DAYS 1 TO 5
     Route: 048
  3. MITOXANTRONE HCL [Suspect]
     Active Substance: MITOXANTRONE HYDROCHLORIDE
     Indication: NON-HODGKIN^S LYMPHOMA
     Dosage: UNK, CYCLIC 7?9 MG/M2 (ON DAY 1)
     Route: 042
  4. VP?16 [Suspect]
     Active Substance: ETOPOSIDE
     Dosage: 200 MG P.O. (UTILIZING THE VIALS FOR PARENTERAL ADMINISTRATION) ON DAYS 3 AND 5
     Route: 048

REACTIONS (1)
  - Infection [Fatal]
